FAERS Safety Report 9261473 (Version 2)
Quarter: 2013Q2

REPORT INFORMATION
  Report Type: Spontaneous
  Country: US (occurrence: US)
  Receive Date: 20130429
  Receipt Date: 20130517
  Transmission Date: 20140414
  Serious: Yes (Hospitalization)
  Sender: FDA-Public Use
  Company Number: US-BAYER-2013-051900

PATIENT
  Age: 24 Year
  Sex: Female

DRUGS (4)
  1. BEYAZ [Suspect]
     Dosage: UNK
     Route: 048
     Dates: start: 2011
  2. BEYAZ [Suspect]
     Dosage: UNK
     Route: 048
  3. SYNTHROID [Concomitant]
     Indication: HYPOTHYROIDISM
     Dosage: UNK
  4. SYNTHROID [Concomitant]
     Indication: HYPOTHYROIDISM

REACTIONS (2)
  - Cholecystectomy [None]
  - Abdominal pain [None]
